FAERS Safety Report 10020356 (Version 1)
Quarter: 2014Q1

REPORT INFORMATION
  Report Type: Spontaneous
  Country: US (occurrence: US)
  Receive Date: 20140319
  Receipt Date: 20140319
  Transmission Date: 20141002
  Serious: No
  Sender: FDA-Public Use
  Company Number: US-BIOGENIDEC-2014BI022284

PATIENT
  Age: 63 Year
  Sex: Female

DRUGS (11)
  1. TECFIDERA [Suspect]
     Indication: MULTIPLE SCLEROSIS
     Route: 048
  2. AMANTADINE HCI [Concomitant]
  3. BACLOFEN [Concomitant]
  4. DETROL LA [Concomitant]
  5. DULOXETINE HCL [Concomitant]
  6. FENOFIBRATE [Concomitant]
  7. LIPITOR [Concomitant]
  8. NEURONTIN [Concomitant]
  9. PROVIGIL [Concomitant]
  10. D 5000 [Concomitant]
  11. DIOVAN [Concomitant]

REACTIONS (2)
  - Constipation [Unknown]
  - Diarrhoea [Unknown]
